FAERS Safety Report 21516531 (Version 1)
Quarter: 2022Q4

REPORT INFORMATION
  Report Type: Other
  Country: FR (occurrence: FR)
  Receive Date: 20221027
  Receipt Date: 20221027
  Transmission Date: 20230112
  Serious: Yes (Hospitalization)
  Sender: FDA-Public Use
  Company Number: None

PATIENT

DRUGS (9)
  1. RUXOLITINIB [Suspect]
     Active Substance: RUXOLITINIB
     Indication: Autoinflammatory disease
     Dosage: 40 MG, QD
     Route: 048
     Dates: start: 20210407, end: 20210921
  2. METHOTREXATE [Suspect]
     Active Substance: METHOTREXATE
     Indication: Autoinflammatory disease
     Dosage: 10 MG, QW
     Route: 048
     Dates: start: 20210729, end: 20220122
  3. PREDNISONE [Suspect]
     Active Substance: PREDNISONE
     Indication: Autoinflammatory disease
     Dosage: 7.5 MG, QD
     Route: 048
     Dates: start: 201311, end: 202109
  4. PREDNISONE [Suspect]
     Active Substance: PREDNISONE
     Dosage: 20 MG, QD
     Route: 048
     Dates: start: 202109
  5. TRIAMCINOLONE HEXACETONIDE [Suspect]
     Active Substance: TRIAMCINOLONE HEXACETONIDE
     Indication: Autoinflammatory disease
     Dosage: UNK
     Route: 014
     Dates: start: 20210915, end: 20210915
  6. FOLIC ACID [Concomitant]
     Active Substance: FOLIC ACID
     Indication: Drug toxicity prophylaxis
     Dosage: 5 MG, QW
     Route: 048
  7. CALCIUM CARBONATE\CHOLECALCIFEROL [Concomitant]
     Active Substance: CALCIUM CARBONATE\CHOLECALCIFEROL
     Indication: Osteoporosis
     Dosage: 2 DOSAGE FORM, QD
     Route: 048
  8. RAMIPRIL [Concomitant]
     Active Substance: RAMIPRIL
     Indication: Myopericarditis
     Dosage: 10 MG, QD
     Route: 048
  9. BISOPROLOL FUMARATE [Concomitant]
     Active Substance: BISOPROLOL FUMARATE
     Indication: Myopericarditis
     Dosage: 7.5 MG, QD
     Route: 048

REACTIONS (1)
  - Perineal abscess [Recovered/Resolved]

NARRATIVE: CASE EVENT DATE: 20210901
